FAERS Safety Report 19263897 (Version 2)
Quarter: 2021Q2

REPORT INFORMATION
  Report Type: Report from Study
  Country: CA (occurrence: CA)
  Receive Date: 20210517
  Receipt Date: 20210520
  Transmission Date: 20210717
  Serious: Yes (Hospitalization, Other)
  Sender: FDA-Public Use
  Company Number: CA-HLS-202005771

PATIENT
  Sex: Female

DRUGS (3)
  1. LITHIUM. [Suspect]
     Active Substance: LITHIUM
     Route: 065
  2. CLOZARIL [Suspect]
     Active Substance: CLOZAPINE
     Indication: PRODUCT USED FOR UNKNOWN INDICATION
     Dosage: 100MG EVERY MORNING AT 225MG AT BEDTIME
     Route: 048
     Dates: start: 20180629
  3. CLOZARIL [Suspect]
     Active Substance: CLOZAPINE
     Indication: PRODUCT USED FOR UNKNOWN INDICATION
     Route: 048
     Dates: start: 20090626, end: 20180528

REACTIONS (6)
  - Delirium [Unknown]
  - Loss of consciousness [Unknown]
  - Confusional state [Unknown]
  - Seizure [Unknown]
  - Dysarthria [Unknown]
  - Bedridden [Unknown]
